FAERS Safety Report 17991798 (Version 1)
Quarter: 2020Q3

REPORT INFORMATION
  Report Type: Report from Study
  Country: GB (occurrence: GB)
  Receive Date: 20200707
  Receipt Date: 20200707
  Transmission Date: 20201103
  Serious: Yes (Other)
  Sender: FDA-Public Use
  Company Number: GB-PFIZER INC-2020257539

PATIENT

DRUGS (2)
  1. MITOXANTRONE HCL [Suspect]
     Active Substance: MITOXANTRONE HYDROCHLORIDE
     Indication: MULTIPLE SCLEROSIS
     Dosage: 12 MG/M2, INFUSION
  2. METHYLPREDNISOLONE. [Concomitant]
     Active Substance: METHYLPREDNISOLONE
     Indication: PREMEDICATION
     Dosage: 1 G INTRAVENOUSLY PRIOR TO EACH DOSE OF MITOXANTRONE
     Route: 042

REACTIONS (2)
  - Varicella [Unknown]
  - Acute promyelocytic leukaemia [Recovering/Resolving]
